FAERS Safety Report 5733741-4 (Version None)
Quarter: 2008Q2

REPORT INFORMATION
  Report Type: 
  Country: None (occurrence: None)
  Receive Date: 20080509
  Receipt Date: 20080505
  Transmission Date: 20081010
  Serious: Yes (Hospitalization, Other)
  Sender: FDA-Public Use
  Company Number: GB-PFIZER INC-2007032146

PATIENT
  Age: 76 Year
  Sex: Male

DRUGS (4)
  1. XALATAN [Suspect]
     Indication: OPEN ANGLE GLAUCOMA
     Route: 061
  2. ALPHAGAN [Suspect]
     Indication: OPEN ANGLE GLAUCOMA
     Route: 061
  3. TIMOLOL MALEATE [Suspect]
     Indication: OPEN ANGLE GLAUCOMA
     Route: 061
  4. TRUSOPT [Suspect]
     Indication: OPEN ANGLE GLAUCOMA
     Route: 061

REACTIONS (8)
  - BLEPHAROPLASTY [None]
  - CONJUNCTIVAL OEDEMA [None]
  - DERMATITIS [None]
  - ECTROPION [None]
  - ERYTHEMA [None]
  - PERIORBITAL OEDEMA [None]
  - SKIN EXFOLIATION [None]
  - SURGERY [None]
